FAERS Safety Report 16970651 (Version 1)
Quarter: 2019Q4

REPORT INFORMATION
  Report Type: Spontaneous
  Country: IR (occurrence: IR)
  Receive Date: 20191029
  Receipt Date: 20191029
  Transmission Date: 20200122
  Serious: Yes (Other)
  Sender: FDA-Public Use
  Company Number: IR-COVIS PHARMA B.V.-2019COV00261

PATIENT

DRUGS (1)
  1. SOTALOL. [Suspect]
     Active Substance: SOTALOL
     Indication: HYPERTROPHIC CARDIOMYOPATHY
     Route: 065

REACTIONS (1)
  - Myasthenic syndrome [Recovering/Resolving]
